FAERS Safety Report 21910606 (Version 1)
Quarter: 2023Q1

REPORT INFORMATION
  Report Type: Spontaneous
  Country: US (occurrence: US)
  Receive Date: 20230125
  Receipt Date: 20230125
  Transmission Date: 20230418
  Serious: No
  Sender: FDA-Public Use
  Company Number: US-SA-SAC20230124000167

PATIENT
  Age: 59 Year
  Sex: Male
  Weight: 350 kg

DRUGS (13)
  1. DUPIXENT [Suspect]
     Active Substance: DUPILUMAB
     Indication: Asthma
     Dosage: 300 MG, QOW
     Route: 058
  2. OXYCODONE [Concomitant]
     Active Substance: OXYCODONE
  3. PREDNISONE [Concomitant]
     Active Substance: PREDNISONE
  4. METHOCARBAMOL [Concomitant]
     Active Substance: METHOCARBAMOL
  5. ONDANSETRON [Concomitant]
     Active Substance: ONDANSETRON
  6. SYNTHROID [Concomitant]
     Active Substance: LEVOTHYROXINE SODIUM
  7. ALBUTEROL SULFATE [Concomitant]
     Active Substance: ALBUTEROL SULFATE
  8. NYSTATIN [Concomitant]
     Active Substance: NYSTATIN
  9. MUPIROCIN [Concomitant]
     Active Substance: MUPIROCIN
  10. TRELEGY ELLIPTA [Concomitant]
     Active Substance: FLUTICASONE FUROATE\UMECLIDINIUM BROMIDE\VILANTEROL TRIFENATATE
  11. ALENDRONATE SODIUM [Concomitant]
     Active Substance: ALENDRONATE SODIUM
  12. ALBUTEROL SULFATE [Concomitant]
     Active Substance: ALBUTEROL SULFATE
  13. KLOR-CON [Concomitant]
     Active Substance: POTASSIUM CHLORIDE

REACTIONS (1)
  - Knee operation [Unknown]

NARRATIVE: CASE EVENT DATE: 20230116
